FAERS Safety Report 8294921-X (Version None)
Quarter: 2012Q2

REPORT INFORMATION
  Report Type: 
  Country: None (occurrence: None)
  Receive Date: 20120418
  Receipt Date: 20120410
  Transmission Date: 20120825
  Serious: Yes (Death)
  Sender: FDA-Public Use
  Company Number: JP-NAPPMUNDI-MAG-2012-0002142

PATIENT
  Age: 79 Year
  Sex: Female

DRUGS (3)
  1. BUPRENORPHINE [Suspect]
     Indication: OSTEOPOROSIS
  2. BUPRENORPHINE [Suspect]
     Indication: OSTEOARTHRITIS
     Dosage: 5 MCG, Q1H
     Route: 062
     Dates: start: 20111122, end: 20111222
  3. BUPRENORPHINE [Suspect]
     Indication: SPINAL COMPRESSION FRACTURE

REACTIONS (1)
  - SUDDEN DEATH [None]
